FAERS Safety Report 5835124-5 (Version None)
Quarter: 2008Q3

REPORT INFORMATION
  Report Type: 
  Country: None (occurrence: None)
  Receive Date: 20080804
  Receipt Date: 20080717
  Transmission Date: 20090109
  Serious: Yes (Other)
  Sender: FDA-Public Use
  Company Number: 2008EU001434

PATIENT
  Age: 40 Year
  Sex: Female

DRUGS (8)
  1. PROGRAF [Suspect]
     Indication: LIVER TRANSPLANT
     Dosage: 5 MG, UNKNOWN/D, ORAL
     Route: 048
     Dates: start: 20080221
  2. ATORVASTATIN CALCIUM [Suspect]
     Indication: MYOCARDIAL INFARCTION
     Dosage: 80 MG, UNKNOWN/D, ORAL
     Route: 048
     Dates: start: 20080530, end: 20080624
  3. PLAVIX [Suspect]
     Indication: MYOCARDIAL INFARCTION
     Dosage: 1 DF, UNKNOWN/D, ORAL
     Route: 048
     Dates: start: 20080523
  4. CELLCEPT [Concomitant]
  5. PERINDOPRIL ERBUMINE [Concomitant]
  6. KARDEGIC (ACETYLSALICYLATE LYSINE) [Concomitant]
  7. SECTRAL [Concomitant]
  8. POTASSIUM CHLORIDE [Concomitant]

REACTIONS (5)
  - DRUG INTERACTION [None]
  - IMMUNOSUPPRESSANT DRUG LEVEL DECREASED [None]
  - MYOCARDIAL INFARCTION [None]
  - UNDERDOSE [None]
  - VENTRICULAR FIBRILLATION [None]
